FAERS Safety Report 19446485 (Version 3)
Quarter: 2025Q4

REPORT INFORMATION
  Report Type: Report from Study
  Country: EU (occurrence: EU)
  Receive Date: 20210622
  Receipt Date: 20251027
  Transmission Date: 20260118
  Serious: Yes (Other)
  Sender: CELLTRION
  Company Number: EU-CELLTRION INC.-2021ES008272

PATIENT

DRUGS (10)
  1. RITUXIMAB [Suspect]
     Active Substance: RITUXIMAB
     Indication: Prophylaxis against transplant rejection
     Dosage: 375 MG/M2, 1/WEEK, 375 MG/M2 WEEKLY (MEDIAN DOSES 3.5 DOSES, RANGE 1-6, ADMINISTERED WEEKLY STARTING
     Route: 042
  2. RITUXIMAB [Suspect]
     Active Substance: RITUXIMAB
     Indication: Adult T-cell lymphoma/leukaemia
     Dosage: 375 MG/M2, 1/WEEK
     Route: 042
  3. TACROLIMUS [Suspect]
     Active Substance: TACROLIMUS
     Indication: Adult T-cell lymphoma/leukaemia
     Dosage: 0.06 MG/KG, QD, FK (TACROLIMUS) X5 DAYS
  4. TACROLIMUS [Suspect]
     Active Substance: TACROLIMUS
     Indication: Prophylaxis against transplant rejection
     Dosage: 0.06 MG/KG, QD
  5. MYCOPHENOLATE MOFETIL [Suspect]
     Active Substance: MYCOPHENOLATE MOFETIL
     Indication: Prophylaxis against transplant rejection
     Dosage: 10 MG/KG, QD
     Route: 065
  6. CYCLOPHOSPHAMIDE [Suspect]
     Active Substance: CYCLOPHOSPHAMIDE
     Indication: Prophylaxis against transplant rejection
     Dosage: 50 MG/KG, QD (ON DAYS +3 AND +4)
     Route: 065
  7. BUSULFAN [Suspect]
     Active Substance: BUSULFAN
     Indication: Prophylaxis against transplant rejection
     Dosage: 3.2 MG/KG, QD (ON DAYS -6 TO -3)
     Route: 042
  8. HUMAN IMMUNOGLOBULIN G [Suspect]
     Active Substance: HUMAN IMMUNOGLOBULIN G
     Indication: Adult T-cell lymphoma/leukaemia
     Dosage: IVIG X5 DAYS
  9. MYCOPHENOLATE MOFETIL [Suspect]
     Active Substance: MYCOPHENOLATE MOFETIL
     Indication: Adult T-cell lymphoma/leukaemia
     Dosage: 10 MG/KG, QD, MMF X3 WEEKS
  10. AMINO ACIDS\ELECTROLYTES NOS [Suspect]
     Active Substance: AMINO ACIDS\ELECTROLYTES NOS
     Indication: Adult T-cell lymphoma/leukaemia
     Dosage: TPE X4 SESSIONS

REACTIONS (5)
  - Spinal cord disorder [Unknown]
  - Cytomegalovirus infection reactivation [Recovering/Resolving]
  - Myelitis [Unknown]
  - Drug effective for unapproved indication [Unknown]
  - Off label use [Unknown]
